FAERS Safety Report 24634705 (Version 1)
Quarter: 2024Q4

REPORT INFORMATION
  Report Type: Spontaneous
  Country: JP (occurrence: JP)
  Receive Date: 20241119
  Receipt Date: 20241119
  Transmission Date: 20250114
  Serious: Yes (Hospitalization)
  Sender: ROCHE
  Company Number: JP-CHUGAI-2024040087AA

PATIENT
  Age: 7 Decade
  Sex: Female

DRUGS (1)
  1. ALECENSA [Suspect]
     Active Substance: ALECTINIB HYDROCHLORIDE
     Indication: Non-small cell lung cancer
     Dosage: 600 MILLIGRAM, BID
     Route: 050

REACTIONS (2)
  - Dizziness [Recovered/Resolved]
  - Blood creatinine increased [Not Recovered/Not Resolved]
